FAERS Safety Report 23093462 (Version 1)
Quarter: 2023Q4

REPORT INFORMATION
  Report Type: Spontaneous
  Country: FR (occurrence: FR)
  Receive Date: 20231023
  Receipt Date: 20231023
  Transmission Date: 20240110
  Serious: Yes (Hospitalization)
  Sender: FDA-Public Use
  Company Number: FR-MYLANLABS-2022M1086680

PATIENT
  Age: 53 Year
  Sex: Female
  Weight: 59 kg

DRUGS (15)
  1. ZYTIGA [Suspect]
     Active Substance: ABIRATERONE ACETATE
     Indication: Product used for unknown indication
     Route: 065
  2. ABACAVIR\LAMIVUDINE [Suspect]
     Active Substance: ABACAVIR\LAMIVUDINE
     Indication: Product used for unknown indication
     Dosage: UNK
     Route: 065
  3. CYPROTERONE ACETATE [Suspect]
     Active Substance: CYPROTERONE ACETATE
     Indication: Androgenetic alopecia
     Dosage: 50 MILLIGRAM, QD (1 TABLET/D FOR 21 DAYS/28)
     Route: 065
     Dates: start: 20020717
  4. CYPROTERONE ACETATE [Suspect]
     Active Substance: CYPROTERONE ACETATE
     Dosage: ANDROCUR WAS REDUCE TO 1/2 (START DATE: 24-SEP-2019)
     Route: 065
  5. CYPROTERONE ACETATE [Suspect]
     Active Substance: CYPROTERONE ACETATE
     Dosage: 1 DOSAGE FORM, QD
     Route: 048
     Dates: start: 20020717, end: 2020
  6. ABACAVIR\LAMIVUDINE [Suspect]
     Active Substance: ABACAVIR\LAMIVUDINE
     Indication: Product used for unknown indication
     Dosage: UNK
     Route: 065
  7. CYPROTERONE ACETATE [Suspect]
     Active Substance: CYPROTERONE ACETATE
     Indication: Product used for unknown indication
     Dosage: UNK
     Route: 065
  8. CYPROTERONE ACETATE [Suspect]
     Active Substance: CYPROTERONE ACETATE
     Dosage: QD (1/2 TABLET A DAY FROM SEPTEMBER 2019)
     Route: 065
  9. CYPROTERONE ACETATE [Suspect]
     Active Substance: CYPROTERONE ACETATE
     Dosage: QD (1/2 TABLET A DAY FROM SEPTEMBER 2019)
     Route: 065
  10. CYPROTERONE [Suspect]
     Active Substance: CYPROTERONE
     Indication: Product used for unknown indication
     Dosage: 50 MG QD FOR 21 DAYS/28, PRESCRIBED ON 28/1/10
     Route: 065
  11. CYPROTERONE ACETATE [Suspect]
     Active Substance: CYPROTERONE ACETATE
     Indication: Product used for unknown indication
     Dosage: 1DF, QD FOR 21 DAYS/28 PRESCRIBED ON 11/1/06
     Route: 065
  12. CYPROTERONE ACETATE [Suspect]
     Active Substance: CYPROTERONE ACETATE
     Dosage: UNK (START DATE: 11-JAN-2006)
     Route: 065
     Dates: end: 20160625
  13. CYPROTERONE [Suspect]
     Active Substance: CYPROTERONE
     Indication: Product used for unknown indication
     Dosage: UNK
     Route: 065
  14. CYPROTERONE [Suspect]
     Active Substance: CYPROTERONE
     Dosage: 50MG QD 1TAB/D FOR 21D/28 PRESCRIBED ON 01/3/18
     Route: 065
  15. CYPROTERONE [Suspect]
     Active Substance: CYPROTERONE
     Dosage: QD (1/2 TABLET A DAY FROM SEPTEMBER 2019)
     Route: 065

REACTIONS (35)
  - Meningioma [Unknown]
  - Weight decreased [Unknown]
  - Intermenstrual bleeding [Unknown]
  - Nausea [Unknown]
  - Memory impairment [Unknown]
  - Aphasia [Recovered/Resolved]
  - Periorbital haematoma [Unknown]
  - Anosmia [Unknown]
  - Hyperkeratosis [Unknown]
  - Fatigue [Unknown]
  - Musculoskeletal pain [Recovered/Resolved]
  - Mixed anxiety and depressive disorder [Unknown]
  - Conjunctivitis [Unknown]
  - Tendon calcification [Unknown]
  - Decreased appetite [Unknown]
  - Off label use [Unknown]
  - Insomnia [Unknown]
  - Spinal pain [Unknown]
  - Hypertriglyceridaemia [Unknown]
  - Anaemia [Unknown]
  - Depression [Unknown]
  - Headache [Unknown]
  - Oedema [Unknown]
  - Arthralgia [Unknown]
  - Hyposmia [Unknown]
  - Lacrimation increased [Unknown]
  - Post procedural haematoma [Recovered/Resolved]
  - Amenorrhoea [Unknown]
  - Pain [Unknown]
  - Stress [Unknown]
  - Alopecia [Not Recovered/Not Resolved]
  - Emotional disorder [Unknown]
  - Vision blurred [Unknown]
  - Abdominal pain [Unknown]
  - Cognitive disorder [Unknown]

NARRATIVE: CASE EVENT DATE: 20021001
